FAERS Safety Report 7523308-X (Version None)
Quarter: 2011Q2

REPORT INFORMATION
  Report Type: 
  Country: None (occurrence: None)
  Receive Date: 20110603
  Receipt Date: 20101216
  Transmission Date: 20111010
  Serious: Yes (Hospitalization)
  Sender: FDA-Public Use
  Company Number: A0903149A

PATIENT
  Age: 76 Year
  Sex: Male

DRUGS (1)
  1. ROSIGLITAZONE MALEATE [Suspect]
     Indication: DIABETES MELLITUS
     Dosage: 4MG TWICE PER DAY
     Route: 048
     Dates: start: 20030226, end: 20080722

REACTIONS (5)
  - LEG AMPUTATION [None]
  - ANTICOAGULANT THERAPY [None]
  - CONTUSION [None]
  - MYOCARDIAL INFARCTION [None]
  - SPINAL CORD INFECTION [None]
